FAERS Safety Report 6764896-0 (Version None)
Quarter: 2010Q2

REPORT INFORMATION
  Report Type: 
  Country: None (occurrence: None)
  Receive Date: 20100609
  Receipt Date: 20100515
  Transmission Date: 20101027
  Serious: No
  Sender: FDA-Public Use
  Company Number: 2010012246

PATIENT
  Age: 8 Year
  Sex: Female
  Weight: 21.7727 kg

DRUGS (1)
  1. CHILDREN'S ZYRTEC ALLERGY [Suspect]
     Indication: SEASONAL ALLERGY
     Dosage: ONE TEASPOONFUL DAILY ORAL
     Route: 048
     Dates: end: 20100515

REACTIONS (7)
  - ABDOMINAL PAIN UPPER [None]
  - DIARRHOEA [None]
  - MALAISE [None]
  - MUSCLE SPASMS [None]
  - PAIN [None]
  - PRODUCT QUALITY ISSUE [None]
  - VOMITING [None]
